FAERS Safety Report 10146465 (Version 1)
Quarter: 2014Q2

REPORT INFORMATION
  Report Type: Spontaneous
  Country: US (occurrence: None)
  Receive Date: 20140430
  Receipt Date: 20140430
  Transmission Date: 20141212
  Serious: Yes (Hospitalization)
  Sender: FDA-Public Use
  Company Number: None

PATIENT
  Age: 32 Year
  Sex: Female

DRUGS (6)
  1. VANCOMYCIN [Suspect]
     Indication: INFECTION
     Dates: start: 20130731, end: 20130822
  2. DOCUSATE [Concomitant]
  3. OXYCODONE [Concomitant]
  4. MULTIVITAMIN [Concomitant]
  5. FERROUS SULFATE [Concomitant]
  6. HYDROMORPHONE [Concomitant]

REACTIONS (5)
  - Pruritus [None]
  - Rash macular [None]
  - Dyspnoea [None]
  - Dizziness [None]
  - Palpitations [None]
